FAERS Safety Report 4991673-3 (Version None)
Quarter: 2006Q2

REPORT INFORMATION
  Report Type: 
  Country: None (occurrence: None)
  Receive Date: 20060502
  Receipt Date: 20060421
  Transmission Date: 20061013
  Serious: Yes (Death, Hospitalization)
  Sender: FDA-Public Use
  Company Number: GXKR2006US02279

PATIENT
  Age: 82 Year
  Sex: Male

DRUGS (4)
  1. WARFARIN SODIUM [Suspect]
     Dosage: 5 MG, QD
  2. GINKGOBILOBA EXTRACT (NGX) (GINKGOBILOBA EXTRACT) [Suspect]
     Dosage: ORAL
     Route: 048
  3. FEVERFEW (TANACETUM PARTHENIUM) [Concomitant]
  4. VITAMIN E [Concomitant]

REACTIONS (2)
  - DRUG INTERACTION [None]
  - INTERNATIONAL NORMALISED RATIO INCREASED [None]
